FAERS Safety Report 5942287-X (Version None)
Quarter: 2008Q4

REPORT INFORMATION
  Report Type: 
  Country: None (occurrence: None)
  Receive Date: 20081105
  Receipt Date: 20081024
  Transmission Date: 20090506
  Serious: Yes (Hospitalization)
  Sender: FDA-Public Use
  Company Number: DE-ELI_LILLY_AND_COMPANY-DE200810006545

PATIENT
  Age: 56 Year
  Sex: Female
  Weight: 60 kg

DRUGS (8)
  1. CYMBALTA [Suspect]
     Indication: DEPRESSION
     Dosage: 30 MG, DAILY (1/D)
     Route: 048
  2. CYMBALTA [Suspect]
     Dosage: 60 MG, DAILY (1/D)
     Route: 048
  3. FLUOXETINE HCL [Suspect]
     Indication: DEPRESSION
     Dosage: 20 MG, UNKNOWN
     Route: 048
     Dates: start: 20060301, end: 20070401
  4. CITALOPRAM [Concomitant]
     Dosage: 10 MG, UNKNOWN
     Route: 065
     Dates: start: 20060101, end: 20060201
  5. ATOSIL [Concomitant]
     Dosage: 25 MG, EACH EVENING
     Route: 065
  6. APONAL [Concomitant]
     Dosage: 10 MG, EACH EVENING
     Route: 065
  7. DICLOFENAC [Concomitant]
     Dosage: 50 MG, AS NEEDED
     Route: 065
  8. ZOLPIDEM [Concomitant]
     Dosage: 1 D/F, EACH EVENING
     Route: 065

REACTIONS (4)
  - DIZZINESS [None]
  - DRY MOUTH [None]
  - HOSPITALISATION [None]
  - RESTLESSNESS [None]
